FAERS Safety Report 7797155-8 (Version None)
Quarter: 2011Q4

REPORT INFORMATION
  Report Type: 
  Country: None (occurrence: None)
  Receive Date: 20111003
  Receipt Date: 20110926
  Transmission Date: 20120403
  Serious: Yes (Death, Hospitalization)
  Sender: FDA-Public Use
  Company Number: 2011MA011548

PATIENT
  Age: 68 Year
  Sex: Female

DRUGS (8)
  1. DICLOFENAC SODIUM [Suspect]
     Indication: OSTEOARTHRITIS
     Dosage: 50 MG; TID
     Dates: start: 20080708, end: 20110531
  2. TRIAMCINOLONE [Concomitant]
  3. AMITRIPTYLINE HCL [Concomitant]
  4. ALENDRONIC ACID [Concomitant]
  5. GABAPENTIN [Concomitant]
  6. ACETAMINOPHEN AND CODEINE PHOSPHATE [Concomitant]
  7. TRAMADOL HCL [Concomitant]
  8. ESTRADIOL [Concomitant]

REACTIONS (8)
  - HAEMATOCHEZIA [None]
  - COLITIS ISCHAEMIC [None]
  - ABDOMINAL PAIN [None]
  - MALAISE [None]
  - FATIGUE [None]
  - ENTERITIS [None]
  - ABDOMINAL RIGIDITY [None]
  - BLOOD SODIUM DECREASED [None]
